FAERS Safety Report 9749893 (Version 3)
Quarter: 2013Q4

REPORT INFORMATION
  Report Type: Spontaneous
  Country: US (occurrence: US)
  Receive Date: 20131212
  Receipt Date: 20131219
  Transmission Date: 20140711
  Serious: Yes (Other)
  Sender: FDA-Public Use
  Company Number: US-PFIZER INC-2013354726

PATIENT
  Age: 54 Year
  Sex: Female
  Weight: 99.77 kg

DRUGS (13)
  1. LYRICA [Suspect]
     Indication: NEUROPATHY PERIPHERAL
     Dosage: 150 MG, 2X/DAY
     Route: 048
     Dates: start: 2008, end: 20131205
  2. LYRICA [Suspect]
     Indication: FIBROMYALGIA
  3. CELEBREX [Suspect]
     Dosage: UNK
  4. ZETIA [Concomitant]
     Indication: BLOOD CHOLESTEROL INCREASED
     Dosage: UNK
  5. PROTONIX [Concomitant]
     Indication: GASTROOESOPHAGEAL REFLUX DISEASE
     Dosage: UNK
  6. TENORMIN [Concomitant]
     Indication: HYPERTENSION
     Dosage: UNK
  7. LAMICTAL [Concomitant]
     Indication: BIPOLAR DISORDER
     Dosage: UNK
  8. PROZAC [Concomitant]
     Dosage: UNK
  9. CRESTOR [Concomitant]
     Indication: BLOOD CHOLESTEROL INCREASED
     Dosage: UNK
  10. TRAZODONE [Concomitant]
     Dosage: UNK
  11. NARCO [Concomitant]
     Indication: PAIN
     Dosage: UNK
  12. MOTRIN [Concomitant]
     Dosage: UNK, AS NEEDED
  13. DIPHENHYDRAMINE [Concomitant]
     Dosage: UNK

REACTIONS (8)
  - Arthropathy [Unknown]
  - Impaired work ability [Unknown]
  - Pain [Unknown]
  - Insomnia [Unknown]
  - Muscle spasms [Unknown]
  - Musculoskeletal discomfort [Unknown]
  - Musculoskeletal stiffness [Unknown]
  - Muscle tightness [Unknown]
